FAERS Safety Report 7518207-3 (Version None)
Quarter: 2011Q2

REPORT INFORMATION
  Report Type: 
  Country: None (occurrence: None)
  Receive Date: 20110531
  Receipt Date: 20110531
  Transmission Date: 20111010
  Serious: No
  Sender: FDA-Public Use
  Company Number: None

PATIENT
  Age: 40 Year
  Sex: Female
  Weight: 112.4921 kg

DRUGS (4)
  1. LAMOTRIGINE [Suspect]
     Indication: DEPRESSION
     Dosage: 200 MG 1 QD PO
     Route: 048
     Dates: start: 20110518
  2. LAMOTRIGINE [Suspect]
     Indication: PANIC REACTION
     Dosage: 200 MG 1 QD PO
     Route: 048
     Dates: start: 20110518
  3. LAMOTRIGINE [Suspect]
     Indication: DEPRESSION
     Dosage: 200 MG 1 QD PO
     Route: 048
     Dates: start: 20110427
  4. LAMOTRIGINE [Suspect]
     Indication: PANIC REACTION
     Dosage: 200 MG 1 QD PO
     Route: 048
     Dates: start: 20110427

REACTIONS (2)
  - MALAISE [None]
  - FATIGUE [None]
